FAERS Safety Report 11624802 (Version 3)
Quarter: 2015Q4

REPORT INFORMATION
  Report Type: Spontaneous
  Country: JP (occurrence: JP)
  Receive Date: 20151013
  Receipt Date: 20151117
  Transmission Date: 20160304
  Serious: Yes (Hospitalization)
  Sender: FDA-Public Use
  Company Number: JP-GLAXOSMITHKLINE-JP2015JPN142610

PATIENT
  Age: 8 Year
  Sex: Male

DRUGS (3)
  1. SERETIDE [Suspect]
     Active Substance: FLUTICASONE FUROATE\SALMETEROL XINAFOATE
     Indication: ASTHMA
     Dosage: 50 ?G, BID
     Route: 055
     Dates: start: 201508
  2. TONIL [Concomitant]
     Indication: ASTHMA
  3. SINGULAIR CHEWABLE TABLETS [Concomitant]
     Indication: ASTHMA
     Dates: start: 201508, end: 20151002

REACTIONS (1)
  - Tic [Recovering/Resolving]

NARRATIVE: CASE EVENT DATE: 20151002
